FAERS Safety Report 12116354 (Version 1)
Quarter: 2016Q1

REPORT INFORMATION
  Report Type: Spontaneous
  Country: US (occurrence: US)
  Receive Date: 20160225
  Receipt Date: 20160225
  Transmission Date: 20160526
  Serious: Yes (Other)
  Sender: FDA-Public Use
  Company Number: US-TARO-2015TAR01125

PATIENT
  Age: 27 Year
  Sex: Male
  Weight: 55.33 kg

DRUGS (20)
  1. LEVOCARNITINE. [Concomitant]
     Active Substance: LEVOCARNITINE
     Dosage: 660 MG, 2X/DAY
  2. CITRAMINS II [Concomitant]
     Dosage: 1 CAPSULES, 2X/DAY
  3. THALAMIC 200/200 [Concomitant]
     Dosage: 0.5 CAPSULES, 2X/DAY
  4. BRAIN CHILD B COMPLEX [Concomitant]
     Dosage: 3 ML, 1X/DAY IN THE EVENING
  5. VITAMIN C [Concomitant]
     Active Substance: ASCORBIC ACID
     Dosage: 250 MG, 2X/DAY
  6. DIAZEPAM ORAL SOLUTION [Concomitant]
     Active Substance: DIAZEPAM
     Route: 048
  7. KEPPRA [Concomitant]
     Active Substance: LEVETIRACETAM
     Dosage: 250 MG, 2X/DAY
  8. LAMOTRIGINE TABLETS 100 MG [Suspect]
     Active Substance: LAMOTRIGINE
     Indication: SEIZURE
     Dosage: 100 MG, 2X/DAY
     Route: 048
     Dates: start: 20151111, end: 20151120
  9. CHLORHEXADINE GLUCONATE 0.125% ORAL RINSE [Concomitant]
     Route: 048
  10. PRIMAL DEFENSE PROBIOTIC [Concomitant]
     Dosage: 0.25 TSP, 1X/DAY IN THE EVENING
  11. FLUOXETINE [Concomitant]
     Active Substance: FLUOXETINE HYDROCHLORIDE
     Dosage: 0.45 ML, 1X/DAY IN THE MORNING
  12. LORAZEPAM. [Concomitant]
     Active Substance: LORAZEPAM
     Dosage: 2 MG, AS NEEDED FOR SURGERY AND TRIMMING NAILS
  13. DIAZEPAM SUPPOSITORY [Concomitant]
  14. MIRALAX [Concomitant]
     Active Substance: POLYETHYLENE GLYCOL 3350
     Dosage: 8.5 G, 1X/DAY
  15. VITAMIN D [Concomitant]
     Active Substance: CHOLECALCIFEROL
     Dosage: 2500 IU, 1X/DAY IN THE EVENING
  16. OLANZAPINE. [Concomitant]
     Active Substance: OLANZAPINE
     Dosage: UNK, 1X/DAY IN THE EVENING
  17. KETOCONAZOLE 2% SHAMPOO [Concomitant]
     Active Substance: KETOCONAZOLE
  18. MUPIROCIN OINTMENT [Concomitant]
     Active Substance: MUPIROCIN
     Route: 061
  19. DIASTAT [Concomitant]
     Active Substance: DIAZEPAM
     Route: 054
  20. LAMOTRIGINE 200 MG (CADISTA) [Concomitant]
     Dosage: UNK
     Dates: end: 20151120

REACTIONS (3)
  - Product substitution issue [Recovered/Resolved]
  - Somnolence [Recovered/Resolved]
  - Generalised tonic-clonic seizure [Recovered/Resolved]

NARRATIVE: CASE EVENT DATE: 20151111
